FAERS Safety Report 9891010 (Version 2)
Quarter: 2014Q1

REPORT INFORMATION
  Report Type: Spontaneous
  Country: US (occurrence: US)
  Receive Date: 20140212
  Receipt Date: 20140327
  Transmission Date: 20141002
  Serious: No
  Sender: FDA-Public Use
  Company Number: US-009507513-1402USA004635

PATIENT
  Age: 23 Year
  Sex: Female
  Weight: 97.52 kg

DRUGS (2)
  1. NEXPLANON [Suspect]
     Indication: CONTRACEPTION
     Dosage: SITE: LEFT ARM
     Dates: start: 20131230, end: 20131230
  2. NEXPLANON [Suspect]
     Dosage: SITE: LEFT ARM
     Route: 059
     Dates: start: 20140106

REACTIONS (4)
  - Device difficult to use [Recovered/Resolved]
  - Medical device complication [Recovered/Resolved]
  - Device deployment issue [Recovered/Resolved]
  - Product quality issue [Unknown]
